FAERS Safety Report 22267544 (Version 1)
Quarter: 2023Q2

REPORT INFORMATION
  Report Type: Spontaneous
  Country: FR (occurrence: FR)
  Receive Date: 20230430
  Receipt Date: 20230430
  Transmission Date: 20230722
  Serious: Yes (Death, Other)
  Sender: FDA-Public Use
  Company Number: FR-STRIDES ARCOLAB LIMITED-2023SP006216

PATIENT
  Age: 67 Year
  Sex: Female

DRUGS (13)
  1. CISPLATIN [Suspect]
     Active Substance: CISPLATIN
     Indication: Bladder transitional cell carcinoma
     Dosage: UNK, CYCLICAL (RECEIVED 4 CYCLES)
     Route: 065
  2. CISPLATIN [Suspect]
     Active Substance: CISPLATIN
     Indication: Metastatic carcinoma of the bladder
  3. DOXORUBICIN [Suspect]
     Active Substance: DOXORUBICIN
     Indication: Bladder transitional cell carcinoma
     Dosage: UNK, CYCLICAL (RECEIVED 4 CYCLES)
     Route: 065
  4. DOXORUBICIN [Suspect]
     Active Substance: DOXORUBICIN
     Indication: Metastatic carcinoma of the bladder
  5. METHOTREXATE [Suspect]
     Active Substance: METHOTREXATE
     Indication: Bladder transitional cell carcinoma
     Dosage: UNK, CYCLICAL (RECEIVED 4 CYCLES)
     Route: 065
  6. METHOTREXATE [Suspect]
     Active Substance: METHOTREXATE
     Indication: Metastatic carcinoma of the bladder
  7. PACLITAXEL [Suspect]
     Active Substance: PACLITAXEL
     Indication: Bladder transitional cell carcinoma
     Dosage: 60 MILLIGRAM/SQ. METER (WEEKLY)
     Route: 065
  8. PACLITAXEL [Suspect]
     Active Substance: PACLITAXEL
     Indication: Metastatic carcinoma of the bladder
  9. PEMBROLIZUMAB [Suspect]
     Active Substance: PEMBROLIZUMAB
     Indication: Bladder transitional cell carcinoma
     Dosage: UNK, CYCLICAL (RECEIVED 4 CYCLES)
     Route: 065
     Dates: start: 202010
  10. PEMBROLIZUMAB [Suspect]
     Active Substance: PEMBROLIZUMAB
     Indication: Metastatic carcinoma of the bladder
  11. VINBLASTINE [Suspect]
     Active Substance: VINBLASTINE
     Indication: Bladder transitional cell carcinoma
     Dosage: UNK(RECEIVED 4 CYCLES)
     Route: 065
  12. VINBLASTINE [Suspect]
     Active Substance: VINBLASTINE
     Indication: Metastatic carcinoma of the bladder
  13. HEPARIN [Concomitant]
     Active Substance: HEPARIN SODIUM
     Indication: Thrombosis prophylaxis
     Dosage: UNK
     Route: 065

REACTIONS (5)
  - Drug ineffective [Fatal]
  - Disease progression [Fatal]
  - Hyperleukocytosis [Unknown]
  - Urinary tract infection [Unknown]
  - Staphylococcal infection [Unknown]

NARRATIVE: CASE EVENT DATE: 20200901
